FAERS Safety Report 7527073-1 (Version None)
Quarter: 2011Q2

REPORT INFORMATION
  Report Type: 
  Country: None (occurrence: None)
  Receive Date: 20110606
  Receipt Date: 20110602
  Transmission Date: 20111010
  Serious: Yes (Death, Hospitalization, Other)
  Sender: FDA-Public Use
  Company Number: US-AMGEN-USASP2011022841

PATIENT
  Age: 78 Year
  Sex: Female
  Weight: 73.923 kg

DRUGS (1)
  1. NPLATE [Suspect]
     Indication: IDIOPATHIC THROMBOCYTOPENIC PURPURA
     Dosage: 700 A?G, QWK
     Route: 058
     Dates: start: 20100806, end: 20110207

REACTIONS (2)
  - CEREBRAL HAEMORRHAGE [None]
  - DRUG INEFFECTIVE [None]
